FAERS Safety Report 9761407 (Version 2)
Quarter: 2014Q1

REPORT INFORMATION
  Report Type: Spontaneous
  Country: JP (occurrence: JP)
  Receive Date: 20131216
  Receipt Date: 20140121
  Transmission Date: 20141002
  Serious: Yes (Hospitalization)
  Sender: FDA-Public Use
  Company Number: PHHY2013JP145945

PATIENT
  Age: 74 Year
  Sex: Male

DRUGS (3)
  1. EXELON PATCH [Suspect]
     Indication: DEMENTIA ALZHEIMER^S TYPE
     Dosage: 4.5 MG, DAILY
     Route: 062
     Dates: start: 20130626
  2. EXELON PATCH [Suspect]
     Dosage: 18 MG, DAILY
     Route: 062
     Dates: end: 20131101
  3. EXELON PATCH [Suspect]
     Dosage: 4.5 MG, DAILY
     Route: 062
     Dates: start: 20131108

REACTIONS (2)
  - Peripheral ischaemia [Not Recovered/Not Resolved]
  - Medication error [Unknown]
